FAERS Safety Report 5584716-X (Version None)
Quarter: 2008Q1

REPORT INFORMATION
  Report Type: 
  Country: None (occurrence: None)
  Receive Date: 20080108
  Receipt Date: 20080103
  Transmission Date: 20080703
  Serious: Yes (Hospitalization, Other)
  Sender: FDA-Public Use
  Company Number: GB-MERCK-0801GBR00016

PATIENT
  Age: 75 Year
  Sex: Male

DRUGS (5)
  1. ZOCOR [Suspect]
     Indication: HYPERCHOLESTEROLAEMIA
     Route: 048
     Dates: start: 20071112
  2. AZATHIOPRINE [Concomitant]
     Indication: ECZEMA
     Route: 065
     Dates: start: 20060210
  3. RAMIPRIL [Concomitant]
     Indication: HYPERTENSION
     Route: 065
     Dates: start: 20010425
  4. WARFARIN [Concomitant]
     Route: 065
     Dates: start: 20010430
  5. ACETAMINOPHEN AND CODEINE PHOSPHATE [Concomitant]
     Indication: ARTHRALGIA
     Route: 065
     Dates: start: 20071101

REACTIONS (1)
  - URINARY RETENTION [None]
